FAERS Safety Report 23811720 (Version 2)
Quarter: 2024Q3

REPORT INFORMATION
  Report Type: Report from Study
  Country: US (occurrence: US)
  Receive Date: 20240503
  Receipt Date: 20240730
  Transmission Date: 20241017
  Serious: Yes (Other)
  Sender: AMGEN
  Company Number: US-HORIZON THERAPEUTICS-HZN-2024-005009

PATIENT
  Age: 55 Year
  Sex: Female

DRUGS (1)
  1. TEPEZZA [Suspect]
     Active Substance: TEPROTUMUMAB-TRBW
     Indication: Toxic goitre
     Dosage: 20 MILLIGRAM/KILOGRAM
     Route: 065
     Dates: start: 20240223, end: 20240719

REACTIONS (10)
  - Renal impairment [Unknown]
  - Muscle spasms [Unknown]
  - Alopecia [Unknown]
  - Fatigue [Unknown]
  - Hypoacusis [Unknown]
  - Hyperaesthesia teeth [Unknown]
  - Gingival pain [Unknown]
  - Toothache [Unknown]
  - Off label use [Unknown]
  - Nail disorder [Unknown]

NARRATIVE: CASE EVENT DATE: 20240101
